FAERS Safety Report 10166865 (Version 3)
Quarter: 2014Q3

REPORT INFORMATION
  Report Type: Spontaneous
  Country: US (occurrence: US)
  Receive Date: 20140512
  Receipt Date: 20140709
  Transmission Date: 20150326
  Serious: Yes (Other)
  Sender: FDA-Public Use
  Company Number: US-BAYER-2014-067882

PATIENT
  Age: 23 Year
  Sex: Female
  Weight: 52.15 kg

DRUGS (2)
  1. IBUPROFEN. [Concomitant]
     Active Substance: IBUPROFEN
  2. MIRENA [Suspect]
     Active Substance: LEVONORGESTREL
     Indication: CONTRACEPTION
     Dosage: 20 MCG/24HR, CONT
     Route: 015
     Dates: start: 20130129, end: 20130312

REACTIONS (8)
  - Pain [None]
  - Activities of daily living impaired [None]
  - Uterine perforation [Recovered/Resolved]
  - Genital haemorrhage [None]
  - Breast pain [None]
  - Dysmenorrhoea [Recovered/Resolved]
  - Abdominal pain lower [None]
  - Device expulsion [None]

NARRATIVE: CASE EVENT DATE: 2013
